FAERS Safety Report 10885068 (Version 1)
Quarter: 2015Q1

REPORT INFORMATION
  Report Type: Spontaneous
  Country: US (occurrence: US)
  Receive Date: 20150304
  Receipt Date: 20150304
  Transmission Date: 20150721
  Serious: No
  Sender: FDA-Public Use
  Company Number: US-TEVA-512133USA

PATIENT
  Age: 78 Year
  Sex: Female
  Weight: 58.5 kg

DRUGS (2)
  1. CETIRIZINE W/PSEUDOEPHEDRINE [Suspect]
     Active Substance: CETIRIZINE HYDROCHLORIDE\PSEUDOEPHEDRINE HYDROCHLORIDE
     Indication: HYPERSENSITIVITY
     Dosage: CETIRIZINE HYDROCHLORIDE 5 MG PSEUDOEPHEDRINE HYDROCHLORIDE 120 MG
     Route: 048
     Dates: start: 20140918, end: 20140918
  2. CETIRIZINE W/PSEUDOEPHEDRINE [Suspect]
     Active Substance: CETIRIZINE HYDROCHLORIDE\PSEUDOEPHEDRINE HYDROCHLORIDE
     Indication: SEASONAL ALLERGY
     Dosage: CETIRIZINE HYDROCHLORIDE 5 MG PSEUDOEPHEDRINE HYDROCHLORIDE 120 MG
     Route: 048
     Dates: start: 20140916, end: 20140916

REACTIONS (2)
  - Drug administered to patient of inappropriate age [Unknown]
  - Insomnia [Recovered/Resolved]

NARRATIVE: CASE EVENT DATE: 20140916
